FAERS Safety Report 8411314-2 (Version None)
Quarter: 2012Q2

REPORT INFORMATION
  Report Type: 
  Country: None (occurrence: None)
  Receive Date: 20120605
  Receipt Date: 20120529
  Transmission Date: 20120825
  Serious: Yes (Other)
  Sender: FDA-Public Use
  Company Number: US-PFIZER INC-2012129190

PATIENT
  Sex: Female
  Weight: 159 kg

DRUGS (6)
  1. LYRICA [Suspect]
  2. LYRICA [Suspect]
     Indication: ARTHRALGIA
     Dosage: 150 MG, 2X/DAY
     Dates: start: 20120101, end: 20120101
  3. FENTANYL [Suspect]
     Indication: PAIN
     Dosage: UNK
  4. LYRICA [Suspect]
     Indication: NEURALGIA
     Dosage: 150 MG, 2X/DAY
     Dates: start: 20120401
  5. MORPHINE SULFATE [Suspect]
     Indication: PAIN
     Dosage: 60 MG, 3X/DAY
  6. LISINOPRIL [Concomitant]
     Indication: HYPERTENSION
     Dosage: 20 MG, 1X/DAY

REACTIONS (4)
  - RESPIRATORY DISORDER [None]
  - ROAD TRAFFIC ACCIDENT [None]
  - DRUG INEFFECTIVE [None]
  - HAEMORRHAGE [None]
